FAERS Safety Report 4486712-2 (Version None)
Quarter: 2004Q4

REPORT INFORMATION
  Report Type: 
  Country: None (occurrence: None)
  Receive Date: 20041021
  Receipt Date: 20041012
  Transmission Date: 20050328
  Serious: Yes (Hospitalization)
  Sender: FDA-Public Use
  Company Number: 2004238957US

PATIENT
  Age: 49 Year
  Sex: Female
  Weight: 69.8 kg

DRUGS (3)
  1. DEPO-PROVERA [Suspect]
     Indication: CONTRACEPTION
     Dosage: FIRST INJECTION
     Dates: start: 20020101, end: 20020101
  2. ZESTRIL [Concomitant]
  3. MIDRIN (DICHLORALPHENAZONE, ISOMETHEPTENE) [Concomitant]

REACTIONS (1)
  - ARTERIAL THROMBOSIS [None]
